FAERS Safety Report 13770355 (Version 2)
Quarter: 2017Q3

REPORT INFORMATION
  Report Type: Spontaneous
  Country: US (occurrence: US)
  Receive Date: 20170719
  Receipt Date: 20170720
  Transmission Date: 20171127
  Serious: Yes (Hospitalization)
  Sender: FDA-Public Use
  Company Number: US-ABBVIE-17P-163-2044080-00

PATIENT
  Sex: Female

DRUGS (3)
  1. LUPRON DEPOT [Suspect]
     Active Substance: LEUPROLIDE ACETATE
     Route: 030
     Dates: start: 2013, end: 2014
  2. LUPRON DEPOT [Suspect]
     Active Substance: LEUPROLIDE ACETATE
     Indication: ENDOMETRIOSIS
     Route: 030
     Dates: start: 2013, end: 2013
  3. SINEMET [Concomitant]
     Active Substance: CARBIDOPA\LEVODOPA
     Indication: RESTLESS LEGS SYNDROME

REACTIONS (8)
  - Abdominal hernia [Not Recovered/Not Resolved]
  - Pelvic pain [Not Recovered/Not Resolved]
  - Delusional disorder, unspecified type [Recovered/Resolved]
  - Wound infection [Recovered/Resolved]
  - Irritability [Not Recovered/Not Resolved]
  - Mental disorder [Recovered/Resolved]
  - Endometriosis [Not Recovered/Not Resolved]
  - Incision site complication [Recovered/Resolved]

NARRATIVE: CASE EVENT DATE: 2013
